FAERS Safety Report 9731570 (Version 1)
Quarter: 2013Q4

REPORT INFORMATION
  Report Type: Report from Study
  Country: CA (occurrence: CA)
  Receive Date: 20131205
  Receipt Date: 20131205
  Transmission Date: 20140711
  Serious: Yes (Other)
  Sender: FDA-Public Use
  Company Number: CA-ROCHE-1311039

PATIENT
  Age: 52 Year
  Sex: Male

DRUGS (3)
  1. PEGASYS [Suspect]
     Indication: CHRONIC HEPATITIS C
     Dosage: 0.5 ML PRE-FILLED SYRINGE
     Route: 058
     Dates: start: 20131107, end: 20131122
  2. COPEGUS [Suspect]
     Indication: CHRONIC HEPATITIS C
     Dosage: 42 TABLET/WEEK=1200MG/DAY
     Route: 048
     Dates: start: 20131107, end: 20131122
  3. INCIVEK [Suspect]
     Indication: CHRONIC HEPATITIS C
     Route: 048

REACTIONS (7)
  - Blood bilirubin increased [Unknown]
  - Jaundice [Unknown]
  - Gilbert^s syndrome [Unknown]
  - Haemolysis [Unknown]
  - Diarrhoea [Unknown]
  - Vomiting [Unknown]
  - Nausea [Unknown]
